FAERS Safety Report 5673158-4 (Version None)
Quarter: 2008Q1

REPORT INFORMATION
  Report Type: 
  Country: None (occurrence: None)
  Receive Date: 20080319
  Receipt Date: 20080310
  Transmission Date: 20080703
  Serious: No
  Sender: FDA-Public Use
  Company Number: IN-BAXTER-2008BH002215

PATIENT

DRUGS (1)
  1. SODIUM CHLORIDE 0.9% IN PLASTIC CONTAINER [Suspect]
     Indication: CARDIAC OPERATION
     Route: 042
     Dates: start: 20080305, end: 20080305

REACTIONS (2)
  - BRONCHOSPASM [None]
  - PYREXIA [None]
